FAERS Safety Report 6447574-7 (Version None)
Quarter: 2009Q4

REPORT INFORMATION
  Report Type: 
  Country: None (occurrence: None)
  Receive Date: 20091119
  Receipt Date: 20090115
  Transmission Date: 20100525
  Serious: Yes (Hospitalization)
  Sender: FDA-Public Use
  Company Number: US-AMGEN-QUU300566

PATIENT
  Sex: Female
  Weight: 65 kg

DRUGS (4)
  1. ENBREL [Suspect]
     Indication: RHEUMATOID ARTHRITIS
     Route: 058
     Dates: start: 20071102
  2. ARAVA [Concomitant]
     Dates: start: 20070827
  3. ARAVA [Concomitant]
     Dates: start: 20070827
  4. IMURAN [Concomitant]
     Dates: start: 20071102, end: 20080921

REACTIONS (3)
  - INJECTION SITE HAEMATOMA [None]
  - INJECTION SITE INDURATION [None]
  - PANCREATITIS [None]
